FAERS Safety Report 15028597 (Version 3)
Quarter: 2019Q1

REPORT INFORMATION
  Report Type: Spontaneous
  Country: JP (occurrence: JP)
  Receive Date: 20180619
  Receipt Date: 20190307
  Transmission Date: 20190417
  Serious: Yes (Hospitalization)
  Sender: FDA-Public Use
  Company Number: JP-EISAI MEDICAL RESEARCH-EC-2018-038081

PATIENT
  Age: 66 Year
  Sex: Male
  Weight: 76 kg

DRUGS (6)
  1. MEROPENEM HYDRATE [Concomitant]
     Active Substance: MEROPENEM
     Indication: ENTEROCOLITIS
     Route: 041
     Dates: start: 20180609, end: 20180615
  2. URSO [Concomitant]
     Active Substance: URSODIOL
     Indication: PRODUCT USED FOR UNKNOWN INDICATION
     Dosage: UNKNOWN
     Dates: end: 201804
  3. URSO [Concomitant]
     Active Substance: URSODIOL
     Dosage: DOSE INCREASED
     Dates: start: 201804
  4. LENVIMA [Suspect]
     Active Substance: LENVATINIB
     Indication: HEPATOCELLULAR CARCINOMA
     Route: 048
     Dates: start: 20180407, end: 20180607
  5. CEFMETAZOLE SODIUM [Concomitant]
     Active Substance: CEFMETAZOLE SODIUM
     Indication: ENTEROCOLITIS
     Route: 041
     Dates: start: 20180607, end: 20180608
  6. BIO-THREE [Concomitant]
     Active Substance: HERBALS
     Indication: DIARRHOEA
     Dosage: UNKNOWN
     Dates: start: 20180427

REACTIONS (11)
  - Pyrexia [Recovering/Resolving]
  - Malaise [Recovering/Resolving]
  - Diarrhoea [Recovering/Resolving]
  - Abdominal pain [Recovering/Resolving]
  - Alanine aminotransferase increased [Recovering/Resolving]
  - Blood thyroid stimulating hormone increased [Recovering/Resolving]
  - Aspartate aminotransferase increased [Recovering/Resolving]
  - Hypothyroidism [Recovering/Resolving]
  - Enterocolitis [Recovering/Resolving]
  - C-reactive protein increased [Recovering/Resolving]
  - Biliary fistula [Recovering/Resolving]

NARRATIVE: CASE EVENT DATE: 20180410
